FAERS Safety Report 24041958 (Version 3)
Quarter: 2024Q3

REPORT INFORMATION
  Report Type: Spontaneous
  Country: US (occurrence: US)
  Receive Date: 20240702
  Receipt Date: 20240904
  Transmission Date: 20241017
  Serious: No
  Sender: INCYTE
  Company Number: US-INCYTE CORPORATION-2024IN006796

PATIENT

DRUGS (4)
  1. JAKAFI [Suspect]
     Active Substance: RUXOLITINIB
     Indication: Hair growth abnormal
     Dosage: UNK
     Route: 065
  2. OPZELURA [Suspect]
     Active Substance: RUXOLITINIB PHOSPHATE
     Indication: Hair growth abnormal
     Dosage: UNK
     Route: 065
  3. RITLECITINIB [Suspect]
     Active Substance: RITLECITINIB
     Indication: Hair growth abnormal
     Dosage: 50 MILLIGRAM, QD
     Route: 048
  4. MINOXIDIL [Concomitant]
     Active Substance: MINOXIDIL
     Indication: Hair growth abnormal
     Dosage: UNK
     Route: 065

REACTIONS (4)
  - Alopecia areata [Unknown]
  - Condition aggravated [Unknown]
  - Off label use [Unknown]
  - Drug effective for unapproved indication [Unknown]
